FAERS Safety Report 8566882-7 (Version None)
Quarter: 2012Q3

REPORT INFORMATION
  Report Type: 
  Country: None (occurrence: None)
  Receive Date: 20120803
  Receipt Date: 20111031
  Transmission Date: 20120928
  Serious: No
  Sender: FDA-Public Use
  Company Number: US-ABBOTT-11P-163-0870038-00

PATIENT
  Sex: Male

DRUGS (4)
  1. NIASPAN [Suspect]
     Dosage: 1500 MG AT BEDTIME (3RD WEEK)
  2. NIASPAN [Suspect]
     Indication: PRODUCT USED FOR UNKNOWN INDICATION
     Dosage: AT BEDTIME
     Dates: start: 20110915
  3. NIASPAN [Suspect]
     Dosage: 500 MG AT BEDTIME (1ST WEEK)
  4. NIASPAN [Suspect]
     Dosage: 1000 MG AT BEDTIME (2ND WEEK)

REACTIONS (1)
  - DIZZINESS [None]
